FAERS Safety Report 4713384-1 (Version None)
Quarter: 2005Q3

REPORT INFORMATION
  Report Type: 
  Country: None (occurrence: None)
  Receive Date: 20050713
  Receipt Date: 20050705
  Transmission Date: 20060218
  Serious: Yes (Other)
  Sender: FDA-Public Use
  Company Number: US-SANOFI-SYNTHELABO-A03200502011

PATIENT
  Sex: Male

DRUGS (4)
  1. UROXATRAL [Suspect]
     Indication: BENIGN PROSTATIC HYPERPLASIA
     Route: 048
     Dates: start: 20050701
  2. TOPROL-XL [Concomitant]
     Dosage: UNK
     Route: 048
  3. ANGIOTENSIN CONVERTING ENZYME INHIBITOR NOS [Concomitant]
     Dosage: UNK
     Route: 048
  4. ANGIOTENSIN II RECEPTOR BLOCKER NOS [Concomitant]
     Dosage: UNK
     Route: 048

REACTIONS (7)
  - BLOOD GLUCOSE INCREASED [None]
  - CHEST PAIN [None]
  - DIZZINESS [None]
  - DYSURIA [None]
  - HEADACHE [None]
  - HEART RATE INCREASED [None]
  - HYPERTENSION [None]
